FAERS Safety Report 24815050 (Version 1)
Quarter: 2025Q1

REPORT INFORMATION
  Report Type: Spontaneous
  Country: CN (occurrence: CN)
  Receive Date: 20250107
  Receipt Date: 20250107
  Transmission Date: 20250408
  Serious: Yes (Hospitalization)
  Sender: PFIZER
  Company Number: CN-PFIZER INC-PV202500000737

PATIENT
  Age: 75 Year
  Sex: Male

DRUGS (4)
  1. VORICONAZOLE [Suspect]
     Active Substance: VORICONAZOLE
     Indication: Pneumonia
     Dosage: 200 MG, Q12H (EVERY 12 HOURS)
     Route: 041
     Dates: start: 20241216, end: 20241222
  2. VORICONAZOLE [Suspect]
     Active Substance: VORICONAZOLE
     Indication: Antifungal treatment
  3. SODIUM CHLORIDE [Concomitant]
     Active Substance: SODIUM CHLORIDE
     Indication: Vehicle solution use
     Dosage: 100 ML, Q12H (EVERY 12 HOURS)
     Route: 041
     Dates: start: 20241216, end: 20241222
  4. FOSFOMYCIN SODIUM [Concomitant]
     Active Substance: FOSFOMYCIN SODIUM
     Indication: Pneumonia
     Dosage: 4 G, Q8H
     Route: 041
     Dates: start: 20241218, end: 20241222

REACTIONS (4)
  - White blood cell count decreased [Not Recovered/Not Resolved]
  - Neutrophil count increased [Unknown]
  - Haemoglobin decreased [Not Recovered/Not Resolved]
  - Platelet count decreased [Not Recovered/Not Resolved]

NARRATIVE: CASE EVENT DATE: 20241218
